FAERS Safety Report 9147774 (Version 1)
Quarter: 2013Q1

REPORT INFORMATION
  Report Type: Spontaneous
  Country: US (occurrence: US)
  Receive Date: 20130307
  Receipt Date: 20130307
  Transmission Date: 20140127
  Serious: Yes (Death)
  Sender: FDA-Public Use
  Company Number: US-ELI_LILLY_AND_COMPANY-US201303000716

PATIENT
  Age: 52 Year
  Sex: Male

DRUGS (2)
  1. GEMZAR [Suspect]
     Indication: PANCREATIC CARCINOMA
     Dosage: 2148 MG, UNK
     Dates: start: 20110512
  2. GEMZAR [Suspect]
     Dosage: 2148 MG, UNK
     Dates: start: 20120326

REACTIONS (1)
  - Death [Fatal]
